FAERS Safety Report 17587228 (Version 1)
Quarter: 2020Q1

REPORT INFORMATION
  Report Type: Report from Study
  Country: IT (occurrence: IT)
  Receive Date: 20200326
  Receipt Date: 20200326
  Transmission Date: 20200409
  Serious: Yes (Other)
  Sender: FDA-Public Use
  Company Number: IT-MYLANLABS-2020M1031863

PATIENT
  Age: 27 Year
  Sex: Male

DRUGS (4)
  1. SERENASE                           /00027401/ [Interacting]
     Active Substance: HALOPERIDOL
     Indication: BIPOLAR DISORDER
     Dosage: 6 MILLIGRAM, QD
     Route: 048
     Dates: start: 20170101, end: 20200302
  2. NOZINAN                            /00038601/ [Interacting]
     Active Substance: LEVOMEPROMAZINE
     Indication: BIPOLAR DISORDER
     Dosage: 300 MILLIGRAM, QD
     Route: 048
     Dates: start: 20200115
  3. LEPONEX [Suspect]
     Active Substance: CLOZAPINE
     Indication: BIPOLAR DISORDER
     Dosage: 400 MILLIGRAM, QD
     Route: 048
     Dates: start: 20191210
  4. LITHIUM. [Interacting]
     Active Substance: LITHIUM
     Indication: BIPOLAR DISORDER
     Dosage: 900 MILLIGRAM, QD
     Route: 048
     Dates: start: 20190302

REACTIONS (2)
  - Drug interaction [Not Recovered/Not Resolved]
  - Tachycardia [Not Recovered/Not Resolved]

NARRATIVE: CASE EVENT DATE: 20200219
